FAERS Safety Report 7835252-9 (Version None)
Quarter: 2011Q4

REPORT INFORMATION
  Report Type: 
  Country: None (occurrence: None)
  Receive Date: 20111024
  Receipt Date: 20111012
  Transmission Date: 20120403
  Serious: Yes (Other)
  Sender: FDA-Public Use
  Company Number: GB-TEVA-304864ISR

PATIENT
  Sex: Female

DRUGS (3)
  1. NORTRIPTYLINE HCL [Suspect]
     Dosage: 75 MG, QD
     Route: 065
  2. TEGRETOL [Suspect]
     Indication: TRIGEMINAL NEURALGIA
     Dosage: 400 MG, BID
     Route: 065
  3. GABAPENTIN [Suspect]
     Dosage: 600 MG, BID
     Route: 065

REACTIONS (2)
  - INAPPROPRIATE ANTIDIURETIC HORMONE SECRETION [None]
  - BLOOD SODIUM DECREASED [None]
